FAERS Safety Report 16266425 (Version 1)
Quarter: 2019Q2

REPORT INFORMATION
  Report Type: Report from Study
  Country: US (occurrence: US)
  Receive Date: 20190502
  Receipt Date: 20190502
  Transmission Date: 20190711
  Serious: Yes (Other)
  Sender: FDA-Public Use
  Company Number: US-JNJFOC-20190445106

PATIENT
  Age: 86 Year
  Sex: Female

DRUGS (6)
  1. DULOXETINE HCL [Concomitant]
     Active Substance: DULOXETINE HYDROCHLORIDE
  2. FENTANYL. [Concomitant]
     Active Substance: FENTANYL
  3. IMBRUVICA [Suspect]
     Active Substance: IBRUTINIB
     Indication: CHRONIC LYMPHOCYTIC LEUKAEMIA
     Route: 048
     Dates: start: 20190308
  4. ATENOLOL. [Concomitant]
     Active Substance: ATENOLOL
  5. OXYCODONE HYDROCHLORIDE. [Concomitant]
     Active Substance: OXYCODONE HYDROCHLORIDE
  6. STOOL SOFTENER (DOCUSATE) [Concomitant]
     Active Substance: DOCUSATE

REACTIONS (3)
  - Incorrect dose administered [Unknown]
  - Off label use [Unknown]
  - Contusion [Not Recovered/Not Resolved]

NARRATIVE: CASE EVENT DATE: 20190308
